FAERS Safety Report 15252353 (Version 1)
Quarter: 2018Q3

REPORT INFORMATION
  Report Type: Spontaneous
  Country: US (occurrence: US)
  Receive Date: 20180807
  Receipt Date: 20180807
  Transmission Date: 20181010
  Serious: Yes (Other)
  Sender: FDA-Public Use
  Company Number: PHEH2018US032041

PATIENT
  Age: 7 Year
  Sex: Male

DRUGS (1)
  1. MEKINIST [Suspect]
     Active Substance: TRAMETINIB DIMETHYL SULFOXIDE
     Indication: NERVOUS SYSTEM NEOPLASM
     Dosage: 0.5 MG, QD
     Route: 048
     Dates: start: 20161129

REACTIONS (1)
  - Paronychia [Unknown]

NARRATIVE: CASE EVENT DATE: 20180728
